FAERS Safety Report 4273154-8 (Version None)
Quarter: 2004Q1

REPORT INFORMATION
  Report Type: 
  Country: None (occurrence: None)
  Receive Date: 20040116
  Receipt Date: 20031028
  Transmission Date: 20041129
  Serious: Yes (Life-Threatening, Hospitalization)
  Sender: FDA-Public Use
  Company Number: PHEH2003US09880

PATIENT
  Age: 54 Year
  Sex: Female
  Weight: 60 kg

DRUGS (8)
  1. ZELNORM [Suspect]
     Indication: IRRITABLE BOWEL SYNDROME
     Dosage: 6 MG, BID
     Dates: start: 20031020, end: 20031023
  2. LANTUS [Concomitant]
     Indication: DIABETES MELLITUS
     Dosage: 20 UNITS QHS
  3. COZAAR [Concomitant]
     Indication: HYPERTENSION
     Dosage: 25 MG, QD
     Route: 048
     Dates: start: 20030101
  4. PROZAC [Concomitant]
     Indication: DEPRESSION
     Dosage: 20 MG, UNK
     Dates: start: 20020101
  5. FOSAMAX [Concomitant]
     Indication: OSTEOPOROSIS
     Dosage: 70 MG, UNK
     Route: 048
     Dates: start: 20020101
  6. ZOCOR [Concomitant]
     Indication: BLOOD CHOLESTEROL
     Dosage: 80 MG, UNK
     Route: 048
     Dates: start: 20030101
  7. HUMALOG [Concomitant]
     Indication: DIABETES MELLITUS
     Dosage: 1 UNK, UNK
  8. ALAVERT                                 /USA/ [Concomitant]
     Indication: HYPERSENSITIVITY

REACTIONS (16)
  - ANAEMIA [None]
  - BLOOD PRESSURE INCREASED [None]
  - CANDIDURIA [None]
  - CONFUSIONAL STATE [None]
  - CONSTIPATION [None]
  - CULTURE STOOL POSITIVE [None]
  - DEHYDRATION [None]
  - DIABETIC KETOACIDOSIS [None]
  - DIARRHOEA [None]
  - DYSPHAGIA [None]
  - LEUKOCYTOSIS [None]
  - NAUSEA [None]
  - OESOPHAGEAL CANDIDIASIS [None]
  - RENAL FAILURE ACUTE [None]
  - TREATMENT NONCOMPLIANCE [None]
  - VOMITING [None]
